FAERS Safety Report 18925459 (Version 1)
Quarter: 2021Q1

REPORT INFORMATION
  Report Type: Spontaneous
  Country: BR (occurrence: BR)
  Receive Date: 20210222
  Receipt Date: 20210222
  Transmission Date: 20210420
  Serious: Yes (Hospitalization, Other)
  Sender: FDA-Public Use
  Company Number: BR-SA-2021SA050153

PATIENT
  Sex: Female

DRUGS (2)
  1. CLEXANE (AMPOULE) [Suspect]
     Active Substance: ENOXAPARIN SODIUM
     Dosage: 40 MG
  2. CLEXANE (AMPOULE) [Suspect]
     Active Substance: ENOXAPARIN SODIUM
     Indication: SYSTEMIC LUPUS ERYTHEMATOSUS
     Dosage: 60 MG

REACTIONS (4)
  - Intentional product use issue [Unknown]
  - Off label use [Unknown]
  - Paralysis [Unknown]
  - Pain [Unknown]
